FAERS Safety Report 25924957 (Version 1)
Quarter: 2025Q4

REPORT INFORMATION
  Report Type: Spontaneous
  Country: US (occurrence: US)
  Receive Date: 20251015
  Receipt Date: 20251015
  Transmission Date: 20260118
  Serious: No
  Sender: SHIELD THERAPEUTICS
  Company Number: SHLD2500035

PATIENT
  Age: 55 Year
  Sex: Female

DRUGS (5)
  1. ACCRUFER [Suspect]
     Active Substance: FERRIC MALTOL
     Indication: Blood iron decreased
     Dosage: IN THE MORNING ON THE FIRST DAY, FOLLOWED BY ANOTHER ON THE NEXT DAY
     Route: 048
  2. ACCRUFER [Suspect]
     Active Substance: FERRIC MALTOL
     Dosage: AFTER A BREAK OF A FEW DAYS, RESUMED BY TAKING ONE CAPSULE, THEN ANOTHER THE FOLLOWING DAY
     Route: 048
  3. PEPCID [Concomitant]
     Active Substance: FAMOTIDINE
     Indication: Gastrooesophageal reflux disease
     Dosage: 60 MILLIGRAM, QD
     Route: 048
     Dates: start: 202102
  4. VITAMIN B12 [Concomitant]
     Active Substance: CYANOCOBALAMIN
     Indication: Product used for unknown indication
     Dosage: UNKNOWN
     Route: 065
  5. FOLATE SODIUM [Concomitant]
     Active Substance: FOLATE SODIUM
     Indication: Product used for unknown indication
     Dosage: UNKNOWN
     Route: 065

REACTIONS (3)
  - Gastrooesophageal reflux disease [Recovering/Resolving]
  - Nausea [Recovered/Resolved]
  - Treatment noncompliance [Unknown]
